FAERS Safety Report 4808263-5 (Version None)
Quarter: 2005Q4

REPORT INFORMATION
  Report Type: 
  Country: None (occurrence: None)
  Receive Date: 20051021
  Receipt Date: 20040526
  Transmission Date: 20060501
  Serious: No
  Sender: FDA-Public Use
  Company Number: EWC040639473

PATIENT
  Age: 49 Year
  Sex: Male

DRUGS (6)
  1. OLANZAPINE [Suspect]
     Indication: DEPRESSION
     Dosage: 15 MG DAY
     Dates: start: 20030501, end: 20040111
  2. OLANZAPINE [Suspect]
     Indication: PSYCHOTIC DISORDER
     Dosage: 15 MG DAY
     Dates: start: 20030501, end: 20040111
  3. VALPROATE SODIUM [Concomitant]
  4. LORAZEPAM [Concomitant]
  5. REMERON [Concomitant]
  6. SEROQUEL [Concomitant]

REACTIONS (7)
  - AKATHISIA [None]
  - BLOOD CHOLESTEROL INCREASED [None]
  - CONDITION AGGRAVATED [None]
  - FORMICATION [None]
  - HYPERGLYCAEMIA [None]
  - LEUKOPENIA [None]
  - RESTLESSNESS [None]
